FAERS Safety Report 16057102 (Version 1)
Quarter: 2019Q2

REPORT INFORMATION
  Report Type: Spontaneous
  Country: US (occurrence: US)
  Receive Date: 20190306
  Receipt Date: 20190306
  Transmission Date: 20190711
  Serious: No
  Sender: FDA-Public Use
  Company Number: None

PATIENT
  Age: 32 Year
  Sex: Female
  Weight: 51.75 kg

DRUGS (2)
  1. TRETINOIN, CLINDAMYCIN, AZELAIC ACID MIX [Suspect]
     Active Substance: AZELAIC ACID\CLINDAMYCIN\TRETINOIN
     Indication: ACNE
     Route: 061
     Dates: start: 20190226, end: 20190305
  2. TRETINOIN, CLINDAMYCIN, AZELAIC ACID MIX [Suspect]
     Active Substance: AZELAIC ACID\CLINDAMYCIN\TRETINOIN
     Indication: PREMATURE AGEING
     Route: 061
     Dates: start: 20190226, end: 20190305

REACTIONS (1)
  - Fatigue [None]

NARRATIVE: CASE EVENT DATE: 20190227
